FAERS Safety Report 13476603 (Version 1)
Quarter: 2017Q2

REPORT INFORMATION
  Report Type: Spontaneous
  Country: US (occurrence: US)
  Receive Date: 20170424
  Receipt Date: 20170424
  Transmission Date: 20170830
  Serious: No
  Sender: FDA-Public Use
  Company Number: US-ABBVIE-16P-163-1736199-00

PATIENT
  Age: 71 Year
  Sex: Male

DRUGS (7)
  1. XANAX (NON-ABBVIE) [Concomitant]
     Indication: ANXIETY
     Route: 065
  2. DITROPAN XL (NON-ABBVIE) [Concomitant]
     Indication: HYPERTONIC BLADDER
     Route: 065
  3. ZOCOR (NON-ABBVIE) [Concomitant]
     Indication: BLOOD CHOLESTEROL INCREASED
     Route: 065
  4. FLOMAX (NON-ABBVIE) [Concomitant]
     Indication: PROSTATOMEGALY
     Route: 065
  5. SAW PALMETTO (NON-ABBVIE) [Concomitant]
     Indication: PRODUCT USED FOR UNKNOWN INDICATION
     Route: 065
  6. LUPRON DEPOT-PED [Suspect]
     Active Substance: LEUPROLIDE ACETATE
     Indication: PROSTATE CANCER
     Route: 030
     Dates: start: 20160816, end: 20160816
  7. ASPIRIN 81MG (NON-ABBVIE) [Concomitant]
     Indication: ANTICOAGULANT THERAPY
     Route: 065

REACTIONS (1)
  - Hot flush [Not Recovered/Not Resolved]

NARRATIVE: CASE EVENT DATE: 201608
